FAERS Safety Report 4358391-6 (Version None)
Quarter: 2004Q2

REPORT INFORMATION
  Report Type: 
  Country: None (occurrence: None)
  Receive Date: 20040512
  Receipt Date: 20040512
  Transmission Date: 20050107
  Serious: Yes (Hospitalization)
  Sender: FDA-Public Use
  Company Number: None

PATIENT
  Sex: Male
  Weight: 99.7913 kg

DRUGS (2)
  1. SPORANOX [Suspect]
     Indication: ONYCHOMYCOSIS
     Dosage: 100 MG CAPSULES TWO PO X 7D, THEN REPEAT MONTLY.
     Route: 048
     Dates: start: 20040409, end: 20040414
  2. LAMISIL [Concomitant]

REACTIONS (10)
  - ABDOMINAL PAIN [None]
  - CHILLS [None]
  - DECREASED APPETITE [None]
  - DYSPNOEA [None]
  - OEDEMA PERIPHERAL [None]
  - PRURITUS [None]
  - PYREXIA [None]
  - RASH GENERALISED [None]
  - SWELLING FACE [None]
  - URINE OUTPUT DECREASED [None]
